FAERS Safety Report 6614402-6 (Version None)
Quarter: 2010Q1

REPORT INFORMATION
  Report Type: 
  Country: None (occurrence: None)
  Receive Date: 20100304
  Receipt Date: 20100223
  Transmission Date: 20100710
  Serious: Yes (Other)
  Sender: FDA-Public Use
  Company Number: PHEH2010US02568

PATIENT
  Sex: Male
  Weight: 128.35 kg

DRUGS (5)
  1. FANAPT [Suspect]
     Indication: SCHIZOPHRENIA
     Dosage: 6 MG, BID
     Route: 048
     Dates: start: 20100128, end: 20100207
  2. BUSPAR [Concomitant]
     Dosage: 15 MG, BID
     Route: 048
  3. LEXAPRO [Concomitant]
     Dosage: 20 MG
     Route: 048
  4. NALTREXONE HYDROCHLORIDE [Concomitant]
     Dosage: 50 MG, QD
     Route: 048
  5. LISINOPRIL AND HYDROCHLOROTHIAZIDE [Concomitant]
     Dosage: 25/10
     Route: 048

REACTIONS (4)
  - AMNESIA [None]
  - CONFUSIONAL STATE [None]
  - DISORIENTATION [None]
  - ROAD TRAFFIC ACCIDENT [None]
